FAERS Safety Report 12648416 (Version 1)
Quarter: 2016Q3

REPORT INFORMATION
  Report Type: Spontaneous
  Country: US (occurrence: US)
  Receive Date: 20160812
  Receipt Date: 20160812
  Transmission Date: 20161109
  Serious: Yes (Other)
  Sender: FDA-Public Use
  Company Number: US-009507513-1608USA004639

PATIENT
  Age: 24 Year
  Sex: Female
  Weight: 58.96 kg

DRUGS (1)
  1. NEXPLANON [Suspect]
     Active Substance: ETONOGESTREL
     Indication: CONTRACEPTION
     Dosage: 1 DF, UNK
     Route: 059
     Dates: start: 20140415, end: 20160118

REACTIONS (3)
  - Complication associated with device [Recovered/Resolved]
  - General anaesthesia [Recovered/Resolved]
  - Polymenorrhoea [Unknown]

NARRATIVE: CASE EVENT DATE: 20151103
